FAERS Safety Report 9508374 (Version 1)
Quarter: 2013Q3

REPORT INFORMATION
  Report Type: Spontaneous
  Country: CH (occurrence: None)
  Receive Date: 20130905
  Receipt Date: 20130905
  Transmission Date: 20140515
  Serious: Yes (Other)
  Sender: FDA-Public Use
  Company Number: FK201303947

PATIENT
  Sex: Male

DRUGS (2)
  1. OXALIPLATIN [Suspect]
     Indication: COLON CANCER
     Dosage: 215 MG, 215MG/250ML
     Dates: start: 20130816, end: 20130816
  2. XELODA (CAPECITABINE) [Concomitant]

REACTIONS (3)
  - Pain [None]
  - Feeling abnormal [None]
  - Phlebitis [None]
